FAERS Safety Report 15843819 (Version 1)
Quarter: 2019Q1

REPORT INFORMATION
  Report Type: Spontaneous
  Country: US (occurrence: US)
  Receive Date: 20190118
  Receipt Date: 20190118
  Transmission Date: 20190417
  Serious: Yes (Hospitalization, Other)
  Sender: FDA-Public Use
  Company Number: US-AMGEN-USASP2019004875

PATIENT
  Age: 82 Year
  Sex: Female

DRUGS (1)
  1. PROLIA [Suspect]
     Active Substance: DENOSUMAB
     Indication: OSTEOPOROSIS POSTMENOPAUSAL
     Dosage: UNK
     Route: 065

REACTIONS (8)
  - Pneumonia [Unknown]
  - Dysphonia [Unknown]
  - Arthritis [Unknown]
  - Dental caries [Unknown]
  - Oral discomfort [Not Recovered/Not Resolved]
  - Ill-defined disorder [Unknown]
  - Unevaluable event [Unknown]
  - Off label use [Unknown]
